FAERS Safety Report 9410789 (Version 2)
Quarter: 2013Q3

REPORT INFORMATION
  Report Type: Report from Study
  Country: US (occurrence: US)
  Receive Date: 20130719
  Receipt Date: 20130918
  Transmission Date: 20140515
  Serious: Yes (Hospitalization)
  Sender: FDA-Public Use
  Company Number: US-009507513-1307USA010368

PATIENT
  Age: 41 Year
  Sex: Female

DRUGS (6)
  1. HYZAAR [Suspect]
     Indication: PRODUCT USED FOR UNKNOWN INDICATION
     Dosage: UNK, QD
     Route: 048
     Dates: start: 20081224, end: 20090105
  2. TRASTUZUMAB [Suspect]
     Indication: BREAST CANCER
     Dosage: UNK UNK, Q3W
     Route: 042
     Dates: start: 20081031
  3. BEVACIZUMAB [Suspect]
     Indication: BREAST CANCER
     Dosage: UNK UNK, Q3W
     Route: 042
     Dates: start: 20081031
  4. DOCETAXEL [Suspect]
     Indication: BREAST CANCER
     Dosage: UNK UNK, Q3W
     Route: 042
     Dates: start: 20081031
  5. CARBOPLATIN [Suspect]
     Indication: BREAST CANCER
     Dosage: STRENGTH: 6 AUC
     Route: 042
     Dates: start: 20081031
  6. NEULASTA [Concomitant]

REACTIONS (2)
  - Hypotension [Recovered/Resolved]
  - Fall [Unknown]
